FAERS Safety Report 5119400-X (Version None)
Quarter: 2006Q3

REPORT INFORMATION
  Report Type: 
  Country: None (occurrence: None)
  Receive Date: 20060928
  Receipt Date: 20060919
  Transmission Date: 20061208
  Serious: Yes (Hospitalization)
  Sender: FDA-Public Use
  Company Number: 2006PV020582

PATIENT
  Age: 64 Year
  Sex: Female
  Weight: 87.0906 kg

DRUGS (10)
  1. BYETTA [Suspect]
     Indication: DIABETES MELLITUS NON-INSULIN-DEPENDENT
     Dosage: 10 + 5 MCG; BID; SC
     Route: 058
     Dates: start: 20051025, end: 20051101
  2. BYETTA [Suspect]
     Indication: DIABETES MELLITUS NON-INSULIN-DEPENDENT
     Dosage: 10 + 5 MCG; BID; SC
     Route: 058
     Dates: start: 20051129
  3. SYNTHROID [Suspect]
     Indication: DRUG USE FOR UNKNOWN INDICATION
     Dosage: 137 MCG; QD; PO
     Route: 048
  4. LANTUS [Concomitant]
  5. QUINAPRIL [Concomitant]
  6. ACTOS [Concomitant]
  7. ZOCOR [Concomitant]
  8. OMACOR [Concomitant]
  9. COLACE [Concomitant]
  10. METAMUCIL [Concomitant]

REACTIONS (3)
  - ATRIAL FIBRILLATION [None]
  - BLOOD GLUCOSE INCREASED [None]
  - TACHYARRHYTHMIA [None]
